FAERS Safety Report 19284405 (Version 2)
Quarter: 2021Q2

REPORT INFORMATION
  Report Type: Spontaneous
  Country: US (occurrence: US)
  Receive Date: 20210521
  Receipt Date: 20210630
  Transmission Date: 20210717
  Serious: No
  Sender: FDA-Public Use
  Company Number: US-GLAXOSMITHKLINE-US2021104532

PATIENT
  Sex: Male

DRUGS (1)
  1. FLUTICASONE PROPIONATE+SALMETEROL XINAFOATE [Suspect]
     Active Substance: FLUTICASONE PROPIONATE\SALMETEROL XINAFOATE
     Indication: PRODUCT USED FOR UNKNOWN INDICATION
     Dosage: 1 PUFF(S), 1D, 100/50MCG 1X60D_AG
     Route: 055

REACTIONS (5)
  - Painful respiration [Unknown]
  - Product complaint [Unknown]
  - Dyspnoea [Unknown]
  - Chest discomfort [Unknown]
  - Dysphonia [Not Recovered/Not Resolved]
